FAERS Safety Report 11492931 (Version 3)
Quarter: 2015Q4

REPORT INFORMATION
  Report Type: Report from Study
  Country: PE (occurrence: PE)
  Receive Date: 20150911
  Receipt Date: 20151005
  Transmission Date: 20160304
  Serious: Yes (Hospitalization, Other)
  Sender: FDA-Public Use
  Company Number: PE-ROCHE-1627800

PATIENT
  Age: 79 Year
  Sex: Male

DRUGS (1)
  1. MABTHERA [Suspect]
     Active Substance: RITUXIMAB
     Indication: NON-HODGKIN^S LYMPHOMA
     Dosage: LAST DOSE PRIOR TO SAE 30/JUL/2015
     Route: 042
     Dates: start: 20150327, end: 20150730

REACTIONS (3)
  - Pyrexia [Recovering/Resolving]
  - Ascites [Recovered/Resolved]
  - Immune system disorder [Recovered/Resolved]

NARRATIVE: CASE EVENT DATE: 201508
